FAERS Safety Report 8061485-5 (Version None)
Quarter: 2012Q1

REPORT INFORMATION
  Report Type: 
  Country: None (occurrence: None)
  Receive Date: 20120120
  Receipt Date: 20120109
  Transmission Date: 20120608
  Serious: No
  Sender: FDA-Public Use
  Company Number: US-ALLERGAN-1116048US

PATIENT
  Age: 77 Year
  Sex: Female

DRUGS (2)
  1. RESTASIS [Suspect]
     Indication: DRY EYE
     Dosage: 2 GTT, BID
     Route: 047
     Dates: start: 20110801
  2. VISINE                             /01061901/ [Concomitant]
     Indication: DRY EYE
     Dosage: UNK
     Route: 047

REACTIONS (5)
  - EYELID MARGIN CRUSTING [None]
  - SWELLING FACE [None]
  - ERYTHEMA [None]
  - EYE PRURITUS [None]
  - DRUG INEFFECTIVE [None]
